FAERS Safety Report 8337632-4 (Version None)
Quarter: 2012Q2

REPORT INFORMATION
  Report Type: 
  Country: None (occurrence: None)
  Receive Date: 20120504
  Receipt Date: 20120413
  Transmission Date: 20120825
  Serious: Yes (Other)
  Sender: FDA-Public Use
  Company Number: US-ROCHE-1014240

PATIENT
  Sex: Female
  Weight: 79 kg

DRUGS (4)
  1. TYLENOL (CAPLET) [Concomitant]
     Indication: HEADACHE
     Dosage: MAX DOSE 2000 MG WEEKLY
     Route: 065
     Dates: start: 20110808, end: 20111020
  2. PEGASYS [Suspect]
     Indication: HEPATITIS B
     Route: 058
     Dates: start: 20110804, end: 20111117
  3. TENOFOVIR DISOPROXIL FUMARATE [Suspect]
     Indication: HEPATITIS B
     Route: 048
     Dates: start: 20110804
  4. VITAMIN D [Concomitant]
     Route: 065
     Dates: start: 20110906

REACTIONS (1)
  - HEPATITIS [None]
